FAERS Safety Report 17009164 (Version 1)
Quarter: 2019Q4

REPORT INFORMATION
  Report Type: Spontaneous
  Country: US (occurrence: US)
  Receive Date: 20191108
  Receipt Date: 20191108
  Transmission Date: 20200122
  Serious: Yes (Death)
  Sender: FDA-Public Use
  Company Number: US-ROCHE-2457067

PATIENT
  Sex: Male

DRUGS (2)
  1. XOLAIR [Suspect]
     Active Substance: OMALIZUMAB
     Indication: PEMPHIGOID
     Dosage: EVERY TWO WEEKS?STRENGTH 75 MG/0.5 ML
     Route: 058
     Dates: start: 20190910
  2. XOLAIR [Suspect]
     Active Substance: OMALIZUMAB
     Dosage: EVERY TWO WEEKS?STRENGTH 150 MG/ML
     Route: 058
     Dates: start: 20190910

REACTIONS (3)
  - Death [Fatal]
  - Off label use [Unknown]
  - Intentional product use issue [Unknown]
